FAERS Safety Report 8055108-9 (Version None)
Quarter: 2012Q1

REPORT INFORMATION
  Report Type: 
  Country: None (occurrence: None)
  Receive Date: 20120119
  Receipt Date: 20120109
  Transmission Date: 20120608
  Serious: Yes (Hospitalization)
  Sender: FDA-Public Use
  Company Number: US-BAYER-2010-002678

PATIENT
  Age: 22 Year
  Sex: Female
  Weight: 64.853 kg

DRUGS (7)
  1. DARVOCET [Concomitant]
     Dosage: UNK
     Dates: start: 20081101
  2. YASMIN [Suspect]
     Indication: PRODUCT USED FOR UNKNOWN INDICATION
     Dosage: UNK
     Route: 048
     Dates: start: 20040101, end: 20091001
  3. HYOSCYAMINE [Concomitant]
     Dosage: UNK
     Dates: start: 20080801
  4. LEVAQUIN [Concomitant]
     Dosage: UNK
     Dates: start: 20080901
  5. IBUPROFEN [Concomitant]
  6. METHYLPREDNISOLONE [Concomitant]
     Dosage: UNK
     Dates: start: 20081001
  7. PRILOSEC [Concomitant]

REACTIONS (1)
  - GALLBLADDER DISORDER [None]
